FAERS Safety Report 24541232 (Version 3)
Quarter: 2025Q1

REPORT INFORMATION
  Report Type: Spontaneous
  Country: TR (occurrence: TR)
  Receive Date: 20241023
  Receipt Date: 20250210
  Transmission Date: 20250409
  Serious: Yes (Other)
  Sender: MYLAN
  Company Number: TR-MYLANLABS-2024M1092002

PATIENT
  Age: 54 Year
  Sex: Male

DRUGS (2)
  1. CARDURA XL [Suspect]
     Active Substance: DOXAZOSIN MESYLATE
     Indication: Benign prostatic hyperplasia
     Dosage: 8 MILLIGRAM, QD (ONCE A DAY)
     Route: 065
  2. CARDURA XL [Suspect]
     Active Substance: DOXAZOSIN MESYLATE
     Dosage: 8 MILLIGRAM, QD (ONCE A DAY)
     Route: 065
     Dates: start: 202309

REACTIONS (4)
  - Dysuria [Unknown]
  - Erectile dysfunction [Unknown]
  - Adverse event [Unknown]
  - Product quality issue [Unknown]
